FAERS Safety Report 19735847 (Version 3)
Quarter: 2021Q3

REPORT INFORMATION
  Report Type: Report from Study
  Country: BR (occurrence: BR)
  Receive Date: 20210823
  Receipt Date: 20210904
  Transmission Date: 20211014
  Serious: Yes (Other)
  Sender: FDA-Public Use
  Company Number: NVSC2021BR183657

PATIENT
  Age: 28 Year
  Sex: Female
  Weight: 78 kg

DRUGS (11)
  1. KISQALI [Suspect]
     Active Substance: RIBOCICLIB
     Indication: NEOPLASM MALIGNANT
     Dosage: 3 DF
     Route: 065
     Dates: start: 20210409
  2. KISQALI [Suspect]
     Active Substance: RIBOCICLIB
     Dosage: 3 DF
     Route: 065
     Dates: start: 20210712
  3. ZOLADEX [Concomitant]
     Active Substance: GOSERELIN ACETATE
     Indication: BREAST CANCER
     Dosage: 1 DF, QMO
     Route: 058
  4. KISQALI [Suspect]
     Active Substance: RIBOCICLIB
     Dosage: 3 DF, QD
     Route: 048
  5. KISQALI [Suspect]
     Active Substance: RIBOCICLIB
     Dosage: 3 DF, QD
     Route: 048
  6. KISQALI [Suspect]
     Active Substance: RIBOCICLIB
     Dosage: 2 DF
     Route: 065
  7. KISQALI [Suspect]
     Active Substance: RIBOCICLIB
     Dosage: 2 DF
     Route: 065
     Dates: start: 20210730, end: 20210812
  8. ANASTROZOLE. [Concomitant]
     Active Substance: ANASTROZOLE
     Indication: ADJUVANT THERAPY
     Dosage: UNK, QD (1 TABLET/1 MG)
     Route: 048
  9. VENLAXIN [Concomitant]
     Active Substance: VENLAFAXINE HYDROCHLORIDE
     Indication: ANXIETY
     Dosage: UNK, QD (1 TABLET/ 37.5 MG)
     Route: 048
  10. KISQALI [Suspect]
     Active Substance: RIBOCICLIB
     Dosage: 3 DF
     Route: 065
     Dates: start: 20210813
  11. ZOMETA [Suspect]
     Active Substance: ZOLEDRONIC ACID
     Indication: CALCIUM DEFICIENCY
     Dosage: 1 DF, QMO
     Route: 042

REACTIONS (4)
  - Immunodeficiency [Unknown]
  - Neutropenia [Unknown]
  - Neutrophil count decreased [Unknown]
  - Neutrophil count decreased [Recovered/Resolved]

NARRATIVE: CASE EVENT DATE: 20210629
